FAERS Safety Report 4997870-5 (Version None)
Quarter: 2006Q2

REPORT INFORMATION
  Report Type: 
  Country: None (occurrence: None)
  Receive Date: 20060508
  Receipt Date: 20060508
  Transmission Date: 20061013
  Serious: No
  Sender: FDA-Public Use
  Company Number: None

PATIENT
  Age: 48 Year
  Sex: Female
  Weight: 99 kg

DRUGS (1)
  1. FERRLECIT [Suspect]
     Indication: ANAEMIA
     Dosage: 250 MG WEEKLY X 4 IV
     Route: 042
     Dates: start: 20060507, end: 20060507

REACTIONS (5)
  - ABDOMINAL PAIN [None]
  - INCORRECT DRUG ADMINISTRATION DURATION [None]
  - MUSCULOSKELETAL STIFFNESS [None]
  - OEDEMA PERIPHERAL [None]
  - RASH [None]
